FAERS Safety Report 11123516 (Version 1)
Quarter: 2015Q2

REPORT INFORMATION
  Report Type: Report from Study
  Country: PG (occurrence: PG)
  Receive Date: 20150519
  Receipt Date: 20150519
  Transmission Date: 20150821
  Serious: Yes (Death, Other)
  Sender: FDA-Public Use
  Company Number: PHHY2012PG050077

PATIENT
  Sex: Male

DRUGS (3)
  1. GLIVEC [Suspect]
     Active Substance: IMATINIB MESYLATE
     Dosage: 400 MG
     Route: 065
  2. GLIVEC [Suspect]
     Active Substance: IMATINIB MESYLATE
     Indication: CHRONIC MYELOID LEUKAEMIA
     Dosage: 400 MG
     Route: 065
  3. GLIVEC [Suspect]
     Active Substance: IMATINIB MESYLATE
     Dosage: 800 MG
     Route: 065

REACTIONS (3)
  - Death [Fatal]
  - Chronic myeloid leukaemia [Unknown]
  - Anaemia [Unknown]
